FAERS Safety Report 6597227-X (Version None)
Quarter: 2010Q1

REPORT INFORMATION
  Report Type: 
  Country: None (occurrence: None)
  Receive Date: 20100219
  Receipt Date: 20100219
  Transmission Date: 20100710
  Serious: Yes (Hospitalization)
  Sender: FDA-Public Use
  Company Number: None

PATIENT
  Sex: Female
  Weight: 95.5 kg

DRUGS (2)
  1. ABILIFY [Suspect]
     Indication: ANXIETY
     Dosage: 10 MG 1 DAILY
     Dates: start: 20100127
  2. ABILIFY [Suspect]
     Indication: DEPRESSION
     Dosage: 10 MG 1 DAILY
     Dates: start: 20100127

REACTIONS (10)
  - ANXIETY [None]
  - DISTURBANCE IN ATTENTION [None]
  - DYSKINESIA [None]
  - FALL [None]
  - GAIT DISTURBANCE [None]
  - INSOMNIA [None]
  - PERIORBITAL HAEMATOMA [None]
  - RESTLESSNESS [None]
  - TREMOR [None]
  - VISION BLURRED [None]
